FAERS Safety Report 11446003 (Version 2)
Quarter: 2015Q4

REPORT INFORMATION
  Report Type: Report from Study
  Country: US (occurrence: US)
  Receive Date: 20150902
  Receipt Date: 20151009
  Transmission Date: 20160304
  Serious: Yes (Hospitalization, Other)
  Sender: FDA-Public Use
  Company Number: US-ACTELION-A-NJ2012-70269

PATIENT
  Age: 32 Year
  Sex: Female

DRUGS (2)
  1. TRACLEER [Suspect]
     Active Substance: BOSENTAN
     Indication: PULMONARY ARTERIAL HYPERTENSION
     Dosage: UNK
     Route: 048
     Dates: start: 201204
  2. GABAPENTIN. [Suspect]
     Active Substance: GABAPENTIN
     Indication: PRODUCT USED FOR UNKNOWN INDICATION
     Route: 065

REACTIONS (14)
  - Fluid retention [Unknown]
  - Blood potassium decreased [Unknown]
  - Fall [Unknown]
  - Wrist fracture [Unknown]
  - Dizziness postural [Unknown]
  - Chest pain [Unknown]
  - Upper limb fracture [Unknown]
  - Pain in extremity [Unknown]
  - Visual impairment [Unknown]
  - Wrist surgery [Unknown]
  - Dizziness [Unknown]
  - Pain in jaw [Unknown]
  - Shoulder operation [Unknown]
  - Myalgia [Unknown]

NARRATIVE: CASE EVENT DATE: 201205
